FAERS Safety Report 7393182-3 (Version None)
Quarter: 2011Q2

REPORT INFORMATION
  Report Type: 
  Country: None (occurrence: None)
  Receive Date: 20110404
  Receipt Date: 20110323
  Transmission Date: 20111010
  Serious: Yes (Disabling)
  Sender: FDA-Public Use
  Company Number: CA-BAYER-2011-023706

PATIENT

DRUGS (3)
  1. HYCODAN [Concomitant]
     Dosage: 1MG/ML, PRN
     Dates: start: 20110120
  2. MOXIFLOXACIN [Suspect]
     Indication: INFECTION
     Dosage: 400 MG, QD
     Route: 048
     Dates: start: 20110111
  3. ADVAIR DISKUS 100/50 [Concomitant]
     Dosage: UNK UNK, BID
     Route: 045
     Dates: start: 20100101

REACTIONS (5)
  - ARTHRALGIA [None]
  - BEDRIDDEN [None]
  - MUSCULOSKELETAL STIFFNESS [None]
  - JOINT SWELLING [None]
  - TENDON PAIN [None]
